FAERS Safety Report 23441816 (Version 1)
Quarter: 2024Q1

REPORT INFORMATION
  Report Type: Report from Study
  Country: RU (occurrence: None)
  Receive Date: 20240125
  Receipt Date: 20240125
  Transmission Date: 20240410
  Serious: Yes (Other)
  Sender: FDA-Public Use
  Company Number: 2024A015806

PATIENT
  Age: 64 Year
  Sex: Female

DRUGS (4)
  1. TAGRISSO [Suspect]
     Active Substance: OSIMERTINIB
     Indication: Non-small cell lung cancer stage IV
     Route: 048
     Dates: start: 20230712, end: 20231017
  2. TAGRISSO [Suspect]
     Active Substance: OSIMERTINIB
     Indication: Bile duct squamous cell carcinoma
     Route: 048
     Dates: start: 20230712, end: 20231017
  3. TAGRISSO [Suspect]
     Active Substance: OSIMERTINIB
     Indication: EGFR gene mutation
     Route: 048
     Dates: start: 20230712, end: 20231017
  4. TAGRISSO [Suspect]
     Active Substance: OSIMERTINIB
     Indication: Central nervous system neoplasm
     Route: 048
     Dates: start: 20230712, end: 20231017

REACTIONS (2)
  - Malignant neoplasm progression [Unknown]
  - Drug ineffective [Unknown]
